FAERS Safety Report 11376937 (Version 1)
Quarter: 2015Q3

REPORT INFORMATION
  Report Type: Spontaneous
  Country: ES (occurrence: ES)
  Receive Date: 20150813
  Receipt Date: 20150813
  Transmission Date: 20151125
  Serious: Yes (Hospitalization)
  Sender: FDA-Public Use
  Company Number: 2015SP002703

PATIENT
  Age: 58 Year
  Sex: Female

DRUGS (3)
  1. ZEBINIX (ESLICARBAZEPINE ACETATE) [Suspect]
     Active Substance: ESLICARBAZEPINE ACETATE
     Indication: FACIAL PAIN
     Route: 048
     Dates: start: 2015, end: 201507
  2. ZEBINIX (ESLICARBAZEPINE ACETATE) [Suspect]
     Active Substance: ESLICARBAZEPINE ACETATE
     Indication: FACIAL PAIN
     Route: 048
     Dates: start: 20150622, end: 2015
  3. TRYPTIZOL [Concomitant]
     Active Substance: AMITRIPTYLINE HYDROCHLORIDE
     Indication: FACIAL PAIN
     Route: 048
     Dates: start: 201505

REACTIONS (5)
  - Rash generalised [Unknown]
  - Leukopenia [Unknown]
  - Rash [Unknown]
  - Off label use [Unknown]
  - Eosinophil count abnormal [Unknown]

NARRATIVE: CASE EVENT DATE: 201506
